FAERS Safety Report 8978091 (Version 2)
Quarter: 2013Q1

REPORT INFORMATION
  Report Type: Spontaneous
  Country: CL (occurrence: CL)
  Receive Date: 20121220
  Receipt Date: 20130103
  Transmission Date: 20140127
  Serious: Yes (Other)
  Sender: FDA-Public Use
  Company Number: CL-PAR PHARMACEUTICAL, INC-2012SCPR004795

PATIENT
  Sex: 0

DRUGS (4)
  1. FLUOXETINE [Suspect]
     Indication: TRICHOTILLOMANIA
     Dosage: 20 MG, UNKNOWN
     Route: 065
  2. ARIPIPRAZOLE [Interacting]
     Indication: TRICHOTILLOMANIA
     Dosage: 5 MG, UNKNOWN
     Route: 065
  3. TRIHEXYPHENIDYL [Suspect]
     Indication: EXTRAPYRAMIDAL DISORDER
     Dosage: UNK, UNKNOWN
     Route: 065
  4. PRIMIDONE [Suspect]
     Indication: EXTRAPYRAMIDAL DISORDER
     Dosage: UNK, UNKNOWN
     Route: 065

REACTIONS (3)
  - Drug interaction [Unknown]
  - Extrapyramidal disorder [Recovered/Resolved]
  - Memory impairment [Recovered/Resolved]
